FAERS Safety Report 11540587 (Version 1)
Quarter: 2015Q3

REPORT INFORMATION
  Report Type: Spontaneous
  Country: US (occurrence: US)
  Receive Date: 20150923
  Receipt Date: 20150923
  Transmission Date: 20151125
  Serious: No
  Sender: FDA-Public Use
  Company Number: US-BEH-2015050504

PATIENT
  Age: 57 Year
  Sex: Female
  Weight: 92 kg

DRUGS (27)
  1. FERREX [Concomitant]
  2. MAGNESIUM [Concomitant]
     Active Substance: MAGNESIUM
  3. LIDOCAINE/PRILOCAINE [Concomitant]
  4. LMX [Concomitant]
     Active Substance: LIDOCAINE
  5. PRIVIGEN [Suspect]
     Active Substance: HUMAN IMMUNOGLOBULIN G
     Indication: PLASMA CELL MYELOMA
     Route: 042
  6. ASPIRIN. [Concomitant]
     Active Substance: ASPIRIN
  7. DAPSONE. [Concomitant]
     Active Substance: DAPSONE
  8. SPIRONOLACTONE. [Concomitant]
     Active Substance: SPIRONOLACTONE
  9. FLUCONAZOLE. [Concomitant]
     Active Substance: FLUCONAZOLE
  10. OMEPRAZOLE. [Concomitant]
     Active Substance: OMEPRAZOLE
  11. PROBIOTIC [Concomitant]
     Active Substance: PROBIOTICS NOS
  12. EPIPEN [Concomitant]
     Active Substance: EPINEPHRINE
  13. POTASSIUM CL [Concomitant]
     Active Substance: POTASSIUM CHLORIDE
  14. ALLEGRA [Concomitant]
     Active Substance: FEXOFENADINE HYDROCHLORIDE
  15. ACETAMINOPHEN. [Concomitant]
     Active Substance: ACETAMINOPHEN
  16. CENTRUM SILVER [Concomitant]
     Active Substance: VITAMINS
  17. LEVOTHYROXINE. [Concomitant]
     Active Substance: LEVOTHYROXINE
  18. CHOLESTYRAMINE. [Concomitant]
     Active Substance: CHOLESTYRAMINE
  19. VAGIFEM [Concomitant]
     Active Substance: ESTRADIOL
  20. AMITRIPTYLINE [Concomitant]
     Active Substance: AMITRIPTYLINE
  21. FAMCICLOVIR. [Concomitant]
     Active Substance: FAMCICLOVIR
  22. DIPHENHYDRAMINE. [Concomitant]
     Active Substance: DIPHENHYDRAMINE
  23. MEDROL [Concomitant]
     Active Substance: METHYLPREDNISOLONE
  24. ZOMETA [Concomitant]
     Active Substance: ZOLEDRONIC ACID
  25. VITAMIN D [Concomitant]
     Active Substance: CHOLECALCIFEROL
  26. CALCIUM+D [Concomitant]
  27. HEPARIN [Concomitant]
     Active Substance: HEPARIN SODIUM

REACTIONS (1)
  - Bronchitis [Recovered/Resolved]

NARRATIVE: CASE EVENT DATE: 20150326
